FAERS Safety Report 7111669-5 (Version None)
Quarter: 2010Q4

REPORT INFORMATION
  Report Type: 
  Country: None (occurrence: None)
  Receive Date: 20101118
  Receipt Date: 20101115
  Transmission Date: 20110411
  Serious: Yes (Death)
  Sender: FDA-Public Use
  Company Number: GB-JNJCH-2003174216GB

PATIENT
  Age: 19 Year
  Sex: Male

DRUGS (6)
  1. IBUPROFEN [Suspect]
     Dosage: TEXT:UNK
     Route: 065
  2. PHENYTOIN [Suspect]
     Dosage: TEXT:UNK
     Route: 065
  3. CYCLOBENZAPRINE [Suspect]
     Dosage: TEXT:UNK
     Route: 065
  4. PHENYLPROPANOLAMINE [Suspect]
     Route: 065
  5. CHLORPHENIRAMINE [Suspect]
     Route: 065
  6. LIDOCAINE [Suspect]
     Route: 065

REACTIONS (3)
  - METABOLIC ACIDOSIS [None]
  - OVERDOSE [None]
  - TACHYCARDIA [None]
